FAERS Safety Report 8551375-3 (Version None)
Quarter: 2012Q3

REPORT INFORMATION
  Report Type: 
  Country: None (occurrence: None)
  Receive Date: 20120730
  Receipt Date: 20120105
  Transmission Date: 20120928
  Serious: No
  Sender: FDA-Public Use
  Company Number: US-ALLERGAN-1200161US

PATIENT
  Sex: Female

DRUGS (1)
  1. LUMIGAN [Suspect]
     Indication: INTRAOCULAR PRESSURE TEST
     Dosage: 1 GTT, QHS
     Route: 047
     Dates: start: 20111201

REACTIONS (4)
  - NAUSEA [None]
  - DECREASED APPETITE [None]
  - DIZZINESS [None]
  - ABDOMINAL DISCOMFORT [None]
